FAERS Safety Report 21799745 (Version 1)
Quarter: 2022Q4

REPORT INFORMATION
  Report Type: Spontaneous
  Country: US (occurrence: US)
  Receive Date: 20221230
  Receipt Date: 20221230
  Transmission Date: 20230113
  Serious: No
  Sender: FDA-Public Use
  Company Number: US-PFIZER INC-PV202200133440

PATIENT
  Age: 61 Year

DRUGS (1)
  1. DESVENLAFAXINE SUCCINATE [Suspect]
     Active Substance: DESVENLAFAXINE SUCCINATE
     Dosage: 25 MG, 2X/DAY (TAKE 25MG IN THE MORNING AND 25MG IN THE EVENING)

REACTIONS (1)
  - Vomiting [Unknown]
